FAERS Safety Report 9130672 (Version 1)
Quarter: 2013Q1

REPORT INFORMATION
  Report Type: Spontaneous
  Country: US (occurrence: US)
  Receive Date: 20130301
  Receipt Date: 20130301
  Transmission Date: 20140127
  Serious: Yes (Hospitalization, Other)
  Sender: FDA-Public Use
  Company Number: US-ASTRAZENECA-2013SE12461

PATIENT
  Age: 47 Year
  Sex: Male

DRUGS (8)
  1. CRESTOR [Suspect]
     Indication: BLOOD CHOLESTEROL ABNORMAL
     Route: 048
     Dates: start: 200608, end: 200703
  2. CRESTOR [Suspect]
     Indication: BLOOD CHOLESTEROL ABNORMAL
     Route: 048
     Dates: start: 20061102
  3. LISINOPRIL [Concomitant]
     Route: 048
     Dates: start: 20061102
  4. TOPROL XL [Concomitant]
     Route: 048
     Dates: start: 20061102
  5. NITROGLYCERIN [Concomitant]
     Dates: start: 20061102
  6. CEPHALEXIN [Concomitant]
     Dates: start: 20070710
  7. AMOX TR K CLV [Concomitant]
     Route: 048
     Dates: start: 20070801
  8. CLINDAMYCIN HCL [Concomitant]
     Route: 048
     Dates: start: 20070912

REACTIONS (5)
  - Rhabdomyolysis [Unknown]
  - Compartment syndrome [Unknown]
  - Depression [Unknown]
  - Pain in extremity [Unknown]
  - Insomnia [Unknown]
